FAERS Safety Report 25227015 (Version 1)
Quarter: 2025Q2

REPORT INFORMATION
  Report Type: Report from Study
  Country: US (occurrence: US)
  Receive Date: 20250422
  Receipt Date: 20250422
  Transmission Date: 20250716
  Serious: Yes (Hospitalization, Other)
  Sender: ABBVIE
  Company Number: US-ABBVIE-6240242

PATIENT
  Age: 83 Year
  Sex: Female
  Weight: 43 kg

DRUGS (20)
  1. CARBIDOPA\LEVODOPA [Suspect]
     Active Substance: CARBIDOPA\LEVODOPA
     Indication: Parkinson^s disease
     Route: 050
     Dates: start: 202305
  2. CARBIDOPA\LEVODOPA [Suspect]
     Active Substance: CARBIDOPA\LEVODOPA
  3. LORAZEPAM [Concomitant]
     Active Substance: LORAZEPAM
     Indication: Anxiety
  4. MIDODRINE [Concomitant]
     Active Substance: MIDODRINE
     Indication: Hypotension
  5. LEVOTHYROXINE [Concomitant]
     Active Substance: LEVOTHYROXINE
     Indication: Hypothyroidism
  6. TYLENOL [Concomitant]
     Active Substance: ACETAMINOPHEN
     Indication: Antiinflammatory therapy
  7. NUPLAZID [Concomitant]
     Active Substance: PIMAVANSERIN TARTRATE
     Indication: Parkinson^s disease
  8. OMEPRAZOLE [Concomitant]
     Active Substance: OMEPRAZOLE
     Indication: Gastrooesophageal reflux disease
  9. BACLOFEN [Concomitant]
     Active Substance: BACLOFEN
     Indication: Muscle spasms
  10. QUETIAPINE [Concomitant]
     Active Substance: QUETIAPINE
     Indication: Parkinson^s disease
  11. CITALOPRAM [Concomitant]
     Active Substance: CITALOPRAM
     Indication: Depression
  12. BUPROPION [Concomitant]
     Active Substance: BUPROPION
     Indication: Depression
  13. TRAMADOL [Concomitant]
     Active Substance: TRAMADOL
     Indication: Antiinflammatory therapy
  14. METOPROLOL [Concomitant]
     Active Substance: METOPROLOL
     Indication: Hypertension
  15. VESICARE [Concomitant]
     Active Substance: SOLIFENACIN SUCCINATE
     Indication: Micturition urgency
  16. ALBUTEROL [Concomitant]
     Active Substance: ALBUTEROL
     Indication: Dyspnoea
  17. LACTULOSE [Concomitant]
     Active Substance: LACTULOSE
     Indication: Gastrointestinal motility disorder
  18. CLONAZEPAM [Concomitant]
     Active Substance: CLONAZEPAM
     Indication: Parkinson^s disease
  19. ASMANEX [Concomitant]
     Active Substance: MOMETASONE FUROATE
     Indication: Asthma
  20. DUONEB [Concomitant]
     Active Substance: ALBUTEROL SULFATE\IPRATROPIUM BROMIDE
     Indication: Dyspnoea

REACTIONS (6)
  - Fall [Not Recovered/Not Resolved]
  - Clavicle fracture [Unknown]
  - Bone pain [Not Recovered/Not Resolved]
  - Dementia [Not Recovered/Not Resolved]
  - Hallucination [Not Recovered/Not Resolved]
  - Osteitis [Recovering/Resolving]

NARRATIVE: CASE EVENT DATE: 20250412
